FAERS Safety Report 9239443 (Version 1)
Quarter: 2013Q2

REPORT INFORMATION
  Report Type: Spontaneous
  Country: US (occurrence: US)
  Receive Date: 20130418
  Receipt Date: 20130418
  Transmission Date: 20140414
  Serious: No
  Sender: FDA-Public Use
  Company Number: US-009507513-1304USA005943

PATIENT
  Sex: Female

DRUGS (6)
  1. FOSAMAX [Suspect]
     Indication: OSTEOPOROSIS
     Route: 048
  2. LYRICA [Suspect]
     Indication: SCIATICA
  3. NOVOCAIN [Suspect]
  4. ZOLOFT [Suspect]
     Indication: DEPRESSION
  5. COUMADIN [Suspect]
     Indication: ATRIAL FIBRILLATION
  6. MIRAPEX [Suspect]
     Indication: RESTLESS LEGS SYNDROME

REACTIONS (5)
  - Eye swelling [Unknown]
  - Ocular hyperaemia [Unknown]
  - Hallucination [Unknown]
  - Dizziness [Unknown]
  - Drug hypersensitivity [Unknown]
